FAERS Safety Report 23510891 (Version 1)
Quarter: 2024Q1

REPORT INFORMATION
  Report Type: Spontaneous
  Country: US (occurrence: US)
  Receive Date: 20240212
  Receipt Date: 20240212
  Transmission Date: 20240410
  Serious: Yes (Other)
  Sender: FDA-Public Use
  Company Number: US-SANOFI-01936647

PATIENT
  Sex: Female

DRUGS (1)
  1. DUPIXENT [Suspect]
     Active Substance: DUPILUMAB
     Indication: Pemphigoid

REACTIONS (4)
  - Renal impairment [Unknown]
  - IgA nephropathy [Unknown]
  - Condition aggravated [Unknown]
  - Product use in unapproved indication [Unknown]
